FAERS Safety Report 17389091 (Version 1)
Quarter: 2020Q1

REPORT INFORMATION
  Report Type: Spontaneous
  Country: GB (occurrence: GB)
  Receive Date: 20200207
  Receipt Date: 20200207
  Transmission Date: 20200409
  Serious: Yes (Other)
  Sender: FDA-Public Use
  Company Number: GB-PFIZER INC-2020049169

PATIENT
  Age: 73 Year
  Sex: Male

DRUGS (2)
  1. DOCETAXEL. [Suspect]
     Active Substance: DOCETAXEL
     Dosage: 50 MG/M2, EVERY 3 WEEKS (50 MG/M2, Q3W)
     Route: 042
     Dates: start: 20170731, end: 20170731
  2. DOCETAXEL. [Suspect]
     Active Substance: DOCETAXEL
     Indication: PROSTATE CANCER
     Dosage: 50 MG/M2, EVERY 3 WEEKS (50 MG/M2, Q3W)
     Route: 042
     Dates: start: 20170619, end: 20170619

REACTIONS (6)
  - Weight decreased [Unknown]
  - Rectal haemorrhage [Unknown]
  - Nausea [Unknown]
  - Neuropathy peripheral [Unknown]
  - Myalgia [Unknown]
  - Decreased appetite [Unknown]

NARRATIVE: CASE EVENT DATE: 20170731
